FAERS Safety Report 9686264 (Version 2)
Quarter: 2013Q4

REPORT INFORMATION
  Report Type: Report from Study
  Country: DE (occurrence: DE)
  Receive Date: 20131113
  Receipt Date: 20131120
  Transmission Date: 20140711
  Serious: Yes (Life-Threatening, Hospitalization)
  Sender: FDA-Public Use
  Company Number: DE-ROCHE-1300845

PATIENT
  Age: 74 Year
  Sex: Female
  Weight: 71 kg

DRUGS (12)
  1. BEVACIZUMAB [Suspect]
     Indication: COLON CANCER
     Dosage: MOST RECENT DOSE PRIOR TO SAE WAS ON 29/OCT/2013.
     Route: 042
     Dates: start: 20131015
  2. BEVACIZUMAB [Suspect]
     Indication: RECTAL CANCER
  3. OXALIPLATIN [Suspect]
     Indication: COLON CANCER
     Dosage: MOST RECENT DOSE PRIOR TO SAE WAS ON 29/OCT/2013.
     Route: 042
     Dates: start: 20131015
  4. OXALIPLATIN [Suspect]
     Indication: RECTAL CANCER
  5. FOLINIC ACID [Suspect]
     Indication: COLON CANCER
     Dosage: MOST RECENT DOSE PRIOR TO SAE WAS ON 29/OCT/2013.
     Route: 042
     Dates: start: 20131015
  6. FOLINIC ACID [Suspect]
     Indication: RECTAL CANCER
  7. FLUOROURACIL [Suspect]
     Indication: COLON CANCER
     Dosage: MOST RECENT DOSE PRIOR TO SAE WAS ON 29/OCT/2013.
     Route: 042
     Dates: start: 20131015
  8. FLUOROURACIL [Suspect]
     Indication: RECTAL CANCER
  9. OXYCODON [Suspect]
     Indication: PAIN
     Route: 048
     Dates: start: 20131009
  10. BISOPROLOL [Suspect]
     Indication: PRODUCT USED FOR UNKNOWN INDICATION
     Route: 048
     Dates: start: 201203
  11. NOVAMINSULFON [Concomitant]
     Indication: PAIN
     Route: 048
     Dates: start: 20130904
  12. HYDROCHLOROTHIAZIDE [Concomitant]
     Route: 048

REACTIONS (2)
  - Metastases to lung [Recovered/Resolved]
  - Drug intolerance [Recovered/Resolved]
